FAERS Safety Report 18542114 (Version 1)
Quarter: 2020Q4

REPORT INFORMATION
  Report Type: Spontaneous
  Country: US (occurrence: US)
  Receive Date: 20201125
  Receipt Date: 20201125
  Transmission Date: 20210114
  Serious: Yes (Hospitalization, Other)
  Sender: FDA-Public Use
  Company Number: US-GRANULES-US-2020GRALIT00051

PATIENT
  Age: 39 Year
  Sex: Male

DRUGS (2)
  1. N ACETYL CYSTEINE [Concomitant]
     Active Substance: ACETYLCYSTEINE
     Indication: ACUTE HEPATIC FAILURE
     Route: 065
  2. ACETAMINOPHEN. [Suspect]
     Active Substance: ACETAMINOPHEN
     Indication: SUICIDE ATTEMPT
     Dosage: 20 ACETAMINOPHEN PILLS  AND ALCOHOL
     Route: 065

REACTIONS (4)
  - Metabolic acidosis [Recovering/Resolving]
  - Suicidal behaviour [Recovering/Resolving]
  - Overdose [Recovering/Resolving]
  - Renal failure [Recovering/Resolving]
